FAERS Safety Report 4408048-8 (Version None)
Quarter: 2004Q3

REPORT INFORMATION
  Report Type: 
  Country: None (occurrence: None)
  Receive Date: 20040721
  Receipt Date: 20031128
  Transmission Date: 20050211
  Serious: Yes (Death)
  Sender: FDA-Public Use
  Company Number: 207908

PATIENT
  Sex: Female
  Weight: 28.5766 kg

DRUGS (2)
  1. HERCEPTIN [Suspect]
     Indication: BREAST CANCER
     Dosage: 124 MG, INTRAVENOUS
     Route: 042
     Dates: start: 20011116, end: 20021205
  2. CAPECITABINE (CAPECITABINE) [Concomitant]

REACTIONS (1)
  - DEATH [None]
